FAERS Safety Report 9915307 (Version 2)
Quarter: 2014Q2

REPORT INFORMATION
  Report Type: Spontaneous
  Country: IE (occurrence: IE)
  Receive Date: 20140221
  Receipt Date: 20140408
  Transmission Date: 20141212
  Serious: Yes (Hospitalization)
  Sender: FDA-Public Use
  Company Number: US-ASTRAZENECA-2014SE11957

PATIENT
  Age: 314 Day
  Sex: Female

DRUGS (6)
  1. SYNAGIS [Suspect]
     Indication: PREMATURE BABY
     Route: 030
     Dates: start: 20131011, end: 20131011
  2. SYNAGIS [Suspect]
     Indication: PREMATURE BABY
     Route: 030
     Dates: start: 20140214, end: 20140214
  3. VITAMIN D [Concomitant]
     Indication: PRODUCT USED FOR UNKNOWN INDICATION
  4. IRON [Concomitant]
     Indication: PRODUCT USED FOR UNKNOWN INDICATION
  5. INHALERIN [Concomitant]
     Indication: PRODUCT USED FOR UNKNOWN INDICATION
  6. HYPERTONIC SALINE SOLUTION [Concomitant]
     Indication: PRODUCT USED FOR UNKNOWN INDICATION
     Dosage: TWICE DAILY. NEBULISER X 24 HOURS

REACTIONS (3)
  - Bronchiolitis [Recovered/Resolved]
  - Respiratory syncytial virus test negative [Recovered/Resolved]
  - Wheezing [Unknown]
